FAERS Safety Report 6451316-9 (Version None)
Quarter: 2009Q4

REPORT INFORMATION
  Report Type: 
  Country: None (occurrence: None)
  Receive Date: 20091123
  Receipt Date: 20091116
  Transmission Date: 20100525
  Serious: Yes (Other)
  Sender: FDA-Public Use
  Company Number: JP-MERCK-0911USA03194

PATIENT
  Age: 63 Year
  Sex: Male

DRUGS (1)
  1. PEPCID [Suspect]
     Route: 051
     Dates: start: 20090101, end: 20090101

REACTIONS (1)
  - RENAL FAILURE ACUTE [None]
